FAERS Safety Report 5677724-1 (Version None)
Quarter: 2008Q1

REPORT INFORMATION
  Report Type: 
  Country: None (occurrence: None)
  Receive Date: 20080324
  Receipt Date: 20080314
  Transmission Date: 20080703
  Serious: Yes (Hospitalization)
  Sender: FDA-Public Use
  Company Number: FR-BOEHRINGER INGELHEIM GMBH, GERMANY-2008-FF-00212FF

PATIENT
  Sex: Female

DRUGS (4)
  1. MICARDIS [Suspect]
     Route: 048
  2. INIPOMP [Suspect]
     Route: 048
  3. BREXIN [Concomitant]
     Route: 048
  4. LEVOTHYROXINE SODIUM [Concomitant]
     Route: 048

REACTIONS (4)
  - HEADACHE [None]
  - HYPONATRAEMIA [None]
  - HYPOTENSION [None]
  - TINNITUS [None]
